FAERS Safety Report 21386587 (Version 1)
Quarter: 2022Q3

REPORT INFORMATION
  Report Type: Spontaneous
  Country: US (occurrence: None)
  Receive Date: 20220926
  Receipt Date: 20220926
  Transmission Date: 20221026
  Serious: Yes (Hospitalization)
  Sender: FDA-Public Use
  Company Number: None

PATIENT
  Age: 83 Year
  Sex: Male

DRUGS (1)
  1. LENALIDOMIDE [Suspect]
     Active Substance: LENALIDOMIDE
     Dosage: FREQUENCY : DAILY;?
     Route: 048
     Dates: start: 202201

REACTIONS (7)
  - Balance disorder [None]
  - Dysarthria [None]
  - Dizziness [None]
  - Tremor [None]
  - Headache [None]
  - Transient ischaemic attack [None]
  - Therapy interrupted [None]

NARRATIVE: CASE EVENT DATE: 20220626
